FAERS Safety Report 14267098 (Version 2)
Quarter: 2019Q1

REPORT INFORMATION
  Report Type: Spontaneous
  Country: US (occurrence: US)
  Receive Date: 20171211
  Receipt Date: 20190327
  Transmission Date: 20190417
  Serious: No
  Sender: FDA-Public Use
  Company Number: US-PFIZER INC-2017524685

PATIENT
  Age: 66 Year
  Sex: Male

DRUGS (3)
  1. CELEBREX [Suspect]
     Active Substance: CELECOXIB
     Dosage: UNK, 2X/DAY(TWICE DAILY)
  2. LYRICA [Concomitant]
     Active Substance: PREGABALIN
     Dosage: UNK
  3. CELEBREX [Suspect]
     Active Substance: CELECOXIB
     Dosage: UNK, 1X/DAY(ONCE DAILY)

REACTIONS (3)
  - Pain [Unknown]
  - Product prescribing error [Unknown]
  - Discomfort [Unknown]
